FAERS Safety Report 9006265 (Version 1)
Quarter: 2013Q1

REPORT INFORMATION
  Report Type: Spontaneous
  Country: US (occurrence: US)
  Receive Date: 20130110
  Receipt Date: 20130110
  Transmission Date: 20140127
  Serious: Yes (Other)
  Sender: FDA-Public Use
  Company Number: US-009507513-1301USA003316

PATIENT
  Age: 50 Year
  Sex: Female

DRUGS (6)
  1. SINGULAIR [Suspect]
     Route: 048
  2. ZETIA [Suspect]
     Route: 048
  3. CRESTOR [Suspect]
  4. NAPROSYN [Concomitant]
     Indication: TYPE 2 DIABETES MELLITUS
  5. PREVACID [Concomitant]
  6. ZOLOFT [Concomitant]

REACTIONS (2)
  - Adverse event [Unknown]
  - Blood glucose decreased [Unknown]
